FAERS Safety Report 21930742 (Version 1)
Quarter: 2023Q1

REPORT INFORMATION
  Report Type: Spontaneous
  Country: GB (occurrence: GB)
  Receive Date: 20230131
  Receipt Date: 20230131
  Transmission Date: 20230418
  Serious: Yes (Hospitalization, Disabling, Other)
  Sender: FDA-Public Use
  Company Number: GB-MYLANLABS-2023M1009628

PATIENT
  Age: 22 Year
  Sex: Female

DRUGS (2)
  1. CYSTAGON [Suspect]
     Active Substance: CYSTEAMINE BITARTRATE
     Indication: Cystinosis
     Dosage: UNK, ON LONG TERM WITH CYSTAGON
     Route: 065
     Dates: end: 202212
  2. CYSTAGON [Suspect]
     Active Substance: CYSTEAMINE BITARTRATE
     Dosage: (START DATE: DEC-2022)
     Route: 065

REACTIONS (5)
  - Quadriparesis [Recovered/Resolved]
  - Encephalopathy [Recovered/Resolved]
  - Large intestine infection [Recovered/Resolved]
  - Blood copper decreased [Recovered/Resolved]
  - Amino acid level decreased [Recovered/Resolved]

NARRATIVE: CASE EVENT DATE: 20221101
